FAERS Safety Report 16370116 (Version 1)
Quarter: 2019Q2

REPORT INFORMATION
  Report Type: Spontaneous
  Country: US (occurrence: US)
  Receive Date: 20190530
  Receipt Date: 20190530
  Transmission Date: 20190711
  Serious: Yes (Hospitalization, Other)
  Sender: FDA-Public Use
  Company Number: US-SA-2019SA145354

PATIENT
  Age: 82 Year
  Sex: Female
  Weight: 51.6 kg

DRUGS (7)
  1. ERYTHROMYCIN. [Concomitant]
     Active Substance: ERYTHROMYCIN
     Indication: ATYPICAL MYCOBACTERIAL INFECTION
     Dosage: 200 MG, QD
  2. ETHAMBUTOL [Suspect]
     Active Substance: ETHAMBUTOL HYDROCHLORIDE
     Indication: ATYPICAL MYCOBACTERIAL INFECTION
     Dosage: 750 MG, QD
  3. CLARITHROMYCIN. [Suspect]
     Active Substance: CLARITHROMYCIN
     Indication: PROPHYLAXIS
     Dosage: 600 MG, QD (12 MG/KG)
     Route: 048
  4. ETHAMBUTOL [Suspect]
     Active Substance: ETHAMBUTOL HYDROCHLORIDE
     Indication: PROPHYLAXIS
     Dosage: 750 MG, QD (15MG/KG)
     Route: 048
  5. RIFAMPICIN [Suspect]
     Active Substance: RIFAMPIN
     Indication: ATYPICAL MYCOBACTERIAL INFECTION
     Dosage: 600 MG, QD
  6. RIFAMPICIN [Suspect]
     Active Substance: RIFAMPIN
     Indication: PROPHYLAXIS
     Dosage: 450 MG, QD (9MG/KG)
     Route: 048
  7. CLARITHROMYCIN. [Suspect]
     Active Substance: CLARITHROMYCIN
     Indication: ATYPICAL MYCOBACTERIAL INFECTION
     Dosage: 800 MG, QD

REACTIONS (8)
  - Back pain [Recovered/Resolved]
  - Hypoxia [Recovered/Resolved]
  - Respiratory acidosis [Recovered/Resolved]
  - Pneumothorax [Recovered/Resolved]
  - Hypercapnia [Recovered/Resolved]
  - Chest pain [Recovered/Resolved]
  - Dyspnoea [Recovered/Resolved]
  - Pleural effusion [Recovered/Resolved]
